FAERS Safety Report 5511391-2 (Version None)
Quarter: 2007Q4

REPORT INFORMATION
  Report Type: 
  Country: None (occurrence: None)
  Receive Date: 20071109
  Receipt Date: 20071005
  Transmission Date: 20080405
  Serious: No
  Sender: FDA-Public Use
  Company Number: A0686332A

PATIENT
  Age: 4 Year
  Sex: Male

DRUGS (1)
  1. ALTABAX [Suspect]
     Dosage: 1APP TWICE PER DAY
     Route: 061
     Dates: start: 20070928, end: 20071002

REACTIONS (2)
  - DRUG INEFFECTIVE [None]
  - URTICARIA [None]
